FAERS Safety Report 4339604-3 (Version None)
Quarter: 2004Q2

REPORT INFORMATION
  Report Type: 
  Country: None (occurrence: None)
  Receive Date: 20040415
  Receipt Date: 19950926
  Transmission Date: 20050107
  Serious: Yes (Congenital Anomaly)
  Sender: FDA-Public Use
  Company Number: US-MERCK-92060466

PATIENT
  Sex: Female
  Weight: 4 kg

DRUGS (2)
  1. DEXEDRINE [Concomitant]
     Route: 065
  2. MEVACOR [Suspect]
     Indication: HYPERCHOLESTEROLAEMIA
     Route: 048

REACTIONS (19)
  - ANOMALY OF EXTERNAL EAR CONGENITAL [None]
  - BREAST ATROPHY [None]
  - CONGENITAL ANOMALY [None]
  - CONGENITAL EYE DISORDER [None]
  - CONGENITAL MUSCULOSKELETAL ANOMALY [None]
  - DENTOFACIAL ANOMALY [None]
  - EYELID PTOSIS [None]
  - GENERAL SYMPTOM [None]
  - HAEMANGIOMA OF SKIN [None]
  - HIGH ARCHED PALATE [None]
  - HYPERPLASIA [None]
  - LIMB REDUCTION DEFECT [None]
  - LOCALISED OSTEOARTHRITIS [None]
  - MATERNAL DRUGS AFFECTING FOETUS [None]
  - NIPPLE DISORDER [None]
  - OESOPHAGEAL STENOSIS [None]
  - OVERDOSE [None]
  - SHOULDER DEFORMITY [None]
  - TORTICOLLIS [None]
